FAERS Safety Report 8998592 (Version 1)
Quarter: 2013Q1

REPORT INFORMATION
  Report Type: Spontaneous
  Country: US (occurrence: US)
  Receive Date: 20130103
  Receipt Date: 20130103
  Transmission Date: 20140127
  Serious: Yes (Hospitalization, Other)
  Sender: FDA-Public Use
  Company Number: US-PFIZER INC-2013001787

PATIENT
  Age: 33 Year
  Sex: Male
  Weight: 86.17 kg

DRUGS (1)
  1. CHANTIX [Suspect]
     Indication: SMOKING CESSATION THERAPY
     Dosage: 0.5 MG, 1X/DAY
     Route: 048
     Dates: start: 201209, end: 20121223

REACTIONS (7)
  - Road traffic accident [Unknown]
  - Depression [Not Recovered/Not Resolved]
  - Panic attack [Not Recovered/Not Resolved]
  - Anxiety [Not Recovered/Not Resolved]
  - Bronchitis [Recovered/Resolved]
  - White blood cell count increased [Unknown]
  - Blood potassium decreased [Unknown]
